FAERS Safety Report 16913343 (Version 20)
Quarter: 2021Q4

REPORT INFORMATION
  Report Type: Report from Study
  Country: GB (occurrence: GB)
  Receive Date: 20191014
  Receipt Date: 20211214
  Transmission Date: 20220303
  Serious: Yes (Hospitalization, Other)
  Sender: FDA-Public Use
  Company Number: None

PATIENT
  Age: 27 Year
  Sex: Female

DRUGS (8)
  1. METHOTREXATE [Suspect]
     Active Substance: METHOTREXATE
     Indication: Product used for unknown indication
     Dosage: UNK  (1ST TRIMESTER)
  2. CERTOLIZUMAB PEGOL [Suspect]
     Active Substance: CERTOLIZUMAB PEGOL
     Indication: Psoriatic arthropathy
     Dosage: 200 MG, EV 2 WEEKS(Q2W)
     Route: 058
     Dates: start: 20180430
  3. FOLIC ACID [Concomitant]
     Active Substance: FOLIC ACID
     Indication: Product used for unknown indication
  4. VITAMIN D3 [Concomitant]
     Active Substance: CHOLECALCIFEROL
     Indication: Product used for unknown indication
  5. VITAMINS [Concomitant]
     Active Substance: VITAMINS
     Indication: Product used for unknown indication
  6. VITAMIN D [Concomitant]
     Active Substance: VITAMIN D NOS
     Indication: Product used for unknown indication
     Dosage: UNK
     Route: 065
  7. CHOLECALCIFEROL [Concomitant]
     Active Substance: CHOLECALCIFEROL
     Dosage: 1ST TRIMESTER
     Route: 065
  8. ERGOCALCIFEROL [Concomitant]
     Active Substance: ERGOCALCIFEROL
     Route: 065

REACTIONS (24)
  - Inflammation [Unknown]
  - Headache [Unknown]
  - Candida infection [Unknown]
  - Maternal exposure during breast feeding [Unknown]
  - Inappropriate schedule of product administration [Unknown]
  - Maternal exposure during pregnancy [Unknown]
  - Arthritis [Unknown]
  - Nasopharyngitis [Recovering/Resolving]
  - Bacterial vaginosis [Unknown]
  - Eating disorder [Unknown]
  - Oropharyngeal pain [Recovering/Resolving]
  - Cough [Unknown]
  - Poor quality sleep [Unknown]
  - Illness [Unknown]
  - Product dose omission issue [Unknown]
  - Diarrhoea [Recovering/Resolving]
  - Ear infection [Recovering/Resolving]
  - Emotional disorder [Unknown]
  - Infection [Not Recovered/Not Resolved]
  - Alopecia [Unknown]
  - Skin exfoliation [Unknown]
  - Maternal exposure before pregnancy [Unknown]
  - Pain of skin [Unknown]
  - Erythema [Unknown]

NARRATIVE: CASE EVENT DATE: 20181201
